FAERS Safety Report 9543423 (Version 2)
Quarter: 2013Q3

REPORT INFORMATION
  Report Type: Spontaneous
  Country: MX (occurrence: MX)
  Receive Date: 20130923
  Receipt Date: 20130923
  Transmission Date: 20140515
  Serious: Yes (Hospitalization)
  Sender: FDA-Public Use
  Company Number: MX-009507513-1207MEX002064

PATIENT
  Age: 64 Year
  Sex: Male

DRUGS (8)
  1. DIPROSPAN [Suspect]
     Indication: VASCULAR INSUFFICIENCY
     Dosage: 1 DF, UNK
     Dates: start: 20120505
  2. DIPROSPAN [Suspect]
     Dosage: 1 DF, UNK
     Dates: start: 20120508
  3. ALIN TABLETS (DEXAMETHASONE) [Concomitant]
     Indication: VENOUS INSUFFICIENCY
     Dosage: 0.50 MG, UNK
     Dates: start: 20120505
  4. HIGROTON [Concomitant]
     Indication: HYPERTENSION
  5. LYRICA [Concomitant]
  6. AKATINOL [Concomitant]
     Indication: DEMENTIA
     Dosage: 10 MG, UNK
  7. TELMISARTAN [Concomitant]
     Indication: HYPERTENSION
  8. CLOPIDOGREL [Concomitant]
     Indication: VENOUS INSUFFICIENCY

REACTIONS (6)
  - Pneumonia [Unknown]
  - Renal pain [Unknown]
  - Varicose ulceration [Unknown]
  - Arthralgia [Unknown]
  - Syncope [Unknown]
  - Hypertension [Unknown]
